FAERS Safety Report 18952953 (Version 1)
Quarter: 2021Q1

REPORT INFORMATION
  Report Type: Spontaneous
  Country: US (occurrence: US)
  Receive Date: 20210227
  Receipt Date: 20210227
  Transmission Date: 20210420
  Serious: No
  Sender: FDA-Public Use
  Company Number: None

PATIENT
  Age: 58 Year
  Sex: Male
  Weight: 90 kg

DRUGS (3)
  1. TERAZOSIN HCL 10MG [Concomitant]
  2. CENTRUM MULTIVITAMINS [Concomitant]
     Active Substance: VITAMINS
  3. DULERA [Suspect]
     Active Substance: FORMOTEROL FUMARATE DIHYDRATE\MOMETASONE FUROATE
     Indication: ASTHMA
     Dosage: ?          QUANTITY:2 PUFF(S);?
     Route: 055
     Dates: start: 20201026, end: 20210122

REACTIONS (3)
  - Wrong technique in product usage process [None]
  - Oral candidiasis [None]
  - Dysphonia [None]

NARRATIVE: CASE EVENT DATE: 20210215
